FAERS Safety Report 9894940 (Version 2)
Quarter: 2014Q1

REPORT INFORMATION
  Report Type: Spontaneous
  Country: US (occurrence: US)
  Receive Date: 20140213
  Receipt Date: 20140220
  Transmission Date: 20141002
  Serious: No
  Sender: FDA-Public Use
  Company Number: US-TEVA-462549USA

PATIENT
  Age: 64 Year
  Sex: Male
  Weight: 77.18 kg

DRUGS (11)
  1. NUVIGIL [Suspect]
     Indication: SOMNOLENCE
     Route: 048
     Dates: start: 201312
  2. NUVIGIL [Suspect]
     Indication: SLEEP APNOEA SYNDROME
  3. NUVIGIL [Suspect]
     Indication: NARCOLEPSY
  4. NEXIUM [Concomitant]
     Indication: GASTROOESOPHAGEAL REFLUX DISEASE
  5. ADVAIR [Concomitant]
     Indication: ASTHMA
  6. ADVAIR [Concomitant]
     Indication: CHRONIC OBSTRUCTIVE PULMONARY DISEASE
  7. NASONEX [Concomitant]
     Indication: RHINITIS ALLERGIC
  8. PROAIR [Concomitant]
     Indication: ASTHMA
  9. PROAIR [Concomitant]
     Indication: CHRONIC OBSTRUCTIVE PULMONARY DISEASE
  10. VIAGRA [Concomitant]
     Indication: ERECTILE DYSFUNCTION
  11. CIALIS [Concomitant]
     Indication: ERECTILE DYSFUNCTION

REACTIONS (2)
  - Glossitis [Not Recovered/Not Resolved]
  - Glossitis [Not Recovered/Not Resolved]
